FAERS Safety Report 9296050 (Version 1)
Quarter: 2013Q2

REPORT INFORMATION
  Report Type: Report from Study
  Country: KR (occurrence: KR)
  Receive Date: 20130517
  Receipt Date: 20130517
  Transmission Date: 20140414
  Serious: Yes (Hospitalization)
  Sender: FDA-Public Use
  Company Number: KR-AMGEN-KORCT2013034419

PATIENT
  Age: 48 Year
  Sex: Male

DRUGS (11)
  1. CINACALCET HCL - KHK [Suspect]
     Indication: HYPERPARATHYROIDISM SECONDARY
     Dosage: 25 MG, UNK
     Route: 048
     Dates: start: 20130204
  2. PHOSBINE [Concomitant]
     Dosage: 2130 MG, UNK
     Route: 048
  3. ASTRIX [Concomitant]
     Dosage: 100 MG, UNK
     Route: 048
  4. CARDURA [Concomitant]
     Dosage: 4 MG, UNK
     Route: 048
  5. PRITOR [Concomitant]
     Dosage: 80 MG, UNK
     Route: 048
  6. ADALAT [Concomitant]
     Dosage: 120 MG, UNK
     Route: 048
  7. DILATREND [Concomitant]
     Dosage: 25 MG, UNK
     Dates: start: 20130221
  8. JEIDIN [Concomitant]
     Dosage: 150 MG, UNK
     Route: 048
  9. AMITRIPTYLIN [Concomitant]
     Dosage: 10 MG, UNK
     Route: 048
  10. FEROBA [Concomitant]
     Dosage: 2 DF, UNK
     Route: 048
  11. NEPHROVITE [Concomitant]
     Dosage: 1 DF, UNK

REACTIONS (1)
  - Chest pain [Recovered/Resolved]
